FAERS Safety Report 9137224 (Version 1)
Quarter: 2013Q1

REPORT INFORMATION
  Report Type: Spontaneous
  Country: US (occurrence: US)
  Receive Date: 20130304
  Receipt Date: 20130304
  Transmission Date: 20140127
  Serious: No
  Sender: FDA-Public Use
  Company Number: US-ABBOTT-12P-163-0967790-00

PATIENT
  Age: 77 None
  Sex: Male
  Weight: 99.88 kg

DRUGS (4)
  1. ANDROGEL 1% [Suspect]
     Indication: BLOOD TESTOSTERONE DECREASED
     Dosage: 7.5 GM DAILY
     Dates: start: 2012
  2. ANDROGEL 1% [Suspect]
     Dosage: 5 GM DAILY
     Dates: start: 2012, end: 2012
  3. CRESTOR [Concomitant]
     Indication: ARTERIOSCLEROSIS
  4. UNSPECIFIED INGREDIENT [Concomitant]
     Indication: PRODUCT USED FOR UNKNOWN INDICATION

REACTIONS (5)
  - Medication error [Unknown]
  - Urticaria [Unknown]
  - Swelling [Unknown]
  - Pruritus generalised [Recovered/Resolved]
  - Erythema [Unknown]
